FAERS Safety Report 19108541 (Version 2)
Quarter: 2021Q2

REPORT INFORMATION
  Report Type: Spontaneous
  Country: IT (occurrence: IT)
  Receive Date: 20210408
  Receipt Date: 20210528
  Transmission Date: 20210717
  Serious: Yes (Hospitalization, Other)
  Sender: FDA-Public Use
  Company Number: IT-SA-2021SA114139

PATIENT
  Age: 55 Year
  Sex: Male

DRUGS (2)
  1. COVERLAM [Concomitant]
     Active Substance: AMLODIPINE BESYLATE\PERINDOPRIL ARGININE
     Indication: HYPERTENSION
     Route: 048
  2. LEMTRADA [Suspect]
     Active Substance: ALEMTUZUMAB
     Indication: MULTIPLE SCLEROSIS
     Dosage: 36 MG, TOTAL
     Route: 042
     Dates: start: 20190401, end: 20190403

REACTIONS (4)
  - COVID-19 pneumonia [Recovered/Resolved]
  - Petechiae [Recovered/Resolved]
  - Immune thrombocytopenia [Recovering/Resolving]
  - Platelet count decreased [Recovered/Resolved]

NARRATIVE: CASE EVENT DATE: 20210222
